FAERS Safety Report 8916351 (Version 2)
Quarter: 2012Q4

REPORT INFORMATION
  Report Type: 
  Country: CA (occurrence: CA)
  Receive Date: 20121120
  Receipt Date: 20121126
  Transmission Date: 20130627
  Serious: Yes (Death)
  Sender: FDA-Public Use
  Company Number: PHHY2012CA006230

PATIENT
  Sex: Female

DRUGS (2)
  1. ACLASTA [Suspect]
     Indication: OSTEOPOROSIS
     Dosage: UNK UKN, UNK
     Route: 042
     Dates: start: 20101215
  2. ACLASTA [Suspect]
     Dosage: UNK
     Route: 042
     Dates: start: 20120208

REACTIONS (3)
  - Scleroderma [Fatal]
  - Pulmonary hypertension [Fatal]
  - Influenza [Not Recovered/Not Resolved]
